FAERS Safety Report 9318651 (Version 2)
Quarter: 2013Q3

REPORT INFORMATION
  Report Type: Spontaneous
  Country: FR (occurrence: FR)
  Receive Date: 20130530
  Receipt Date: 20130808
  Transmission Date: 20140515
  Serious: Yes (Hospitalization)
  Sender: FDA-Public Use
  Company Number: FR-PFIZER INC-2013160714

PATIENT
  Age: 66 Year
  Sex: Male

DRUGS (13)
  1. ORELOX [Suspect]
     Indication: ERYSIPELAS
     Dosage: UNK
     Route: 048
     Dates: start: 20121204, end: 20121205
  2. VENTOLINE [Concomitant]
     Dosage: UNK
  3. ATROVENT [Concomitant]
     Dosage: UNK
  4. CORVASAL [Concomitant]
     Dosage: UNK
  5. LERCAN [Concomitant]
     Dosage: UNK
  6. TAHOR [Concomitant]
     Dosage: UNK
  7. KARDEGIC [Concomitant]
     Dosage: UNK
  8. STAGID [Concomitant]
     Dosage: UNK
  9. EUPHYLLINE [Concomitant]
     Dosage: UNK
  10. NASONEX [Concomitant]
     Dosage: UNK
  11. MOPRAL [Concomitant]
     Dosage: UNK
  12. KLIPAL [Concomitant]
     Dosage: UNK
  13. MONO-TILDIEM [Concomitant]
     Dosage: UNK

REACTIONS (3)
  - Acute generalised exanthematous pustulosis [Recovering/Resolving]
  - Pyrexia [Unknown]
  - Pruritus [Unknown]
